FAERS Safety Report 24465543 (Version 2)
Quarter: 2024Q4

REPORT INFORMATION
  Report Type: Report from Study
  Country: CA (occurrence: CA)
  Receive Date: 20241018
  Receipt Date: 20241031
  Transmission Date: 20250115
  Serious: Yes (Other)
  Sender: SANDOZ
  Company Number: CA-002147023-NVSC2023CA092314

PATIENT
  Age: 30 Year
  Sex: Female

DRUGS (3)
  1. HYRIMOZ [Suspect]
     Active Substance: ADALIMUMAB-ADAZ
     Dosage: 160 MG, QW, 160MG W0, 80MG W2, 40MG Q 2 WEEK STARTING AT W4;NUL
     Route: 058
  2. HYRIMOZ [Suspect]
     Active Substance: ADALIMUMAB-ADAZ
     Indication: Colitis ulcerative
     Dosage: 40 MG, Q2W
     Route: 058
     Dates: start: 20220518
  3. HYRIMOZ [Suspect]
     Active Substance: ADALIMUMAB-ADAZ
     Dosage: UNK, 160MG W0, 80MG W2, 40MG Q 2 WEEK STARTING AT W4;NUL
     Route: 058

REACTIONS (9)
  - Haematochezia [Unknown]
  - Colitis [Unknown]
  - Faeces pale [Not Recovered/Not Resolved]
  - Constipation [Unknown]
  - Nasopharyngitis [Unknown]
  - Influenza [Unknown]
  - Pharyngitis [Unknown]
  - Exposure during pregnancy [Unknown]
  - Therapy interrupted [Unknown]

NARRATIVE: CASE EVENT DATE: 20230426
